FAERS Safety Report 5945335-6 (Version None)
Quarter: 2008Q4

REPORT INFORMATION
  Report Type: 
  Country: None (occurrence: None)
  Receive Date: 20081107
  Receipt Date: 20081028
  Transmission Date: 20090506
  Serious: Yes (Death, Disabling, Other)
  Sender: FDA-Public Use
  Company Number: JP-PFIZER INC-2008088548

PATIENT
  Sex: Female

DRUGS (12)
  1. GABAPEN [Suspect]
     Indication: PAIN
     Dosage: DAILY DOSE:1000MG
     Route: 048
     Dates: start: 20080828, end: 20080917
  2. GABAPEN [Interacting]
     Indication: CANCER PAIN
  3. WARFARIN SODIUM [Interacting]
     Indication: ATRIAL FIBRILLATION
     Route: 048
     Dates: start: 20070901, end: 20080906
  4. RABEPRAZOLE SODIUM [Concomitant]
     Route: 048
     Dates: start: 20070925, end: 20080917
  5. LASIX [Concomitant]
     Route: 048
     Dates: start: 20070925, end: 20080917
  6. ALDACTONE [Concomitant]
     Route: 048
     Dates: start: 20070925, end: 20080910
  7. DIGOXIN [Concomitant]
     Route: 048
     Dates: start: 20070925, end: 20080917
  8. VALSARTAN [Concomitant]
     Route: 048
     Dates: start: 20070925, end: 20080917
  9. ATELEC [Concomitant]
     Route: 048
     Dates: start: 20070920, end: 20080917
  10. CYANOCOBALAMIN [Concomitant]
     Route: 048
     Dates: start: 20080407, end: 20080917
  11. CELECOXIB [Concomitant]
     Route: 048
     Dates: start: 20080407, end: 20080911
  12. CALONAL [Concomitant]
     Route: 048
     Dates: start: 20080829, end: 20080903

REACTIONS (7)
  - ALTERED STATE OF CONSCIOUSNESS [None]
  - DIZZINESS [None]
  - DRUG INTERACTION [None]
  - DYSARTHRIA [None]
  - FALL [None]
  - HAEMORRHAGE [None]
  - SOMNOLENCE [None]
